FAERS Safety Report 7779020-5 (Version None)
Quarter: 2011Q3

REPORT INFORMATION
  Report Type: 
  Country: None (occurrence: None)
  Receive Date: 20110926
  Receipt Date: 20110920
  Transmission Date: 20111222
  Serious: Yes (Life-Threatening, Other)
  Sender: FDA-Public Use
  Company Number: US-CELGENEUS-163-20785-11070880

PATIENT
  Sex: Male

DRUGS (12)
  1. THALOMID [Suspect]
     Indication: MULTIPLE MYELOMA
     Dosage: 200 MILLIGRAM
     Route: 048
     Dates: start: 20100701, end: 20110701
  2. NEULASTA [Concomitant]
     Route: 065
  3. WHOLE BLOOD [Concomitant]
     Route: 041
     Dates: start: 20110829, end: 20110829
  4. ACYCLOVIR [Concomitant]
     Route: 065
  5. NEXIUM [Concomitant]
     Route: 065
  6. METFORMIN HCL [Concomitant]
     Route: 065
  7. NEUPOGEN [Concomitant]
     Route: 065
  8. ARANESP [Concomitant]
     Route: 065
     Dates: start: 20070101, end: 20090101
  9. NEURONTIN [Concomitant]
     Route: 065
  10. CIPROFLOXACIN [Concomitant]
     Route: 065
  11. VIDAZA [Concomitant]
     Route: 065
     Dates: start: 20110101, end: 20110830
  12. OXYCODONE [Concomitant]
     Indication: PAIN
     Route: 065

REACTIONS (2)
  - MULTIPLE MYELOMA [None]
  - ACUTE MYELOID LEUKAEMIA [None]
